FAERS Safety Report 8502690 (Version 4)
Quarter: 2013Q2

REPORT INFORMATION
  Report Type: Spontaneous
  Country: US (occurrence: None)
  Receive Date: 20120327
  Receipt Date: 20120709
  Transmission Date: 20140414
  Serious: Yes (Other)
  Sender: FDA-Public Use
  Company Number: PHEH2009US02403

PATIENT
  Age: 54 Year
  Sex: Female
  Weight: 64.9 kg

DRUGS (19)
  1. GLEEVEC [Suspect]
     Indication: CHRONIC MYELOID LEUKAEMIA
     Dosage: 300 MG, QD, ORAL , 100 MG, QD, 400 MG, QD
     Route: 048
     Dates: start: 20090104
  2. PROGRAF [Concomitant]
  3. MEDROL [Concomitant]
  4. MAGNESIUM [Concomitant]
  5. EPIVIR [Concomitant]
  6. XALATAN [Concomitant]
  7. TIMOLOL MALEATE [Concomitant]
  8. PROTONIX [Concomitant]
  9. FOSAMAX [Concomitant]
  10. NOROXIN [Concomitant]
  11. ACETYLSALICYLIC ACID (ACETYLSALICYLIC ACID) [Concomitant]
  12. MULTIVITAMIN [Concomitant]
  13. PRAVACHOL [Concomitant]
  14. FORTEO [Concomitant]
  15. NASACORT [Concomitant]
  16. TUMS (CALCIUM CARBONATE) [Concomitant]
  17. MAGNESIUM OXIDE [Concomitant]
  18. IRON [Concomitant]
  19. MILK THISTLE [Concomitant]

REACTIONS (4)
  - PLATELET COUNT DECREASED [None]
  - OEDEMA PERIPHERAL [None]
  - MEAN PLATELET VOLUME DECREASED [None]
  - WHITE BLOOD CELL COUNT DECREASED [None]
